FAERS Safety Report 9049476 (Version 1)
Quarter: 2013Q1

REPORT INFORMATION
  Report Type: Spontaneous
  Country: JP (occurrence: JP)
  Receive Date: 20130205
  Receipt Date: 20130205
  Transmission Date: 20140127
  Serious: Yes (Other)
  Sender: FDA-Public Use
  Company Number: JP-GLAXOSMITHKLINE-B0864199A

PATIENT
  Sex: Female

DRUGS (4)
  1. RELENZA [Suspect]
     Indication: INFLUENZA
     Route: 055
     Dates: start: 20130127
  2. MEDICON [Concomitant]
     Route: 048
  3. LOXONIN [Concomitant]
     Route: 048
  4. SELBEX [Concomitant]
     Route: 048

REACTIONS (2)
  - Hypothermia [Unknown]
  - Therapeutic response decreased [Unknown]
